FAERS Safety Report 9384086 (Version 1)
Quarter: 2013Q3

REPORT INFORMATION
  Report Type: Spontaneous
  Country: US (occurrence: US)
  Receive Date: 20130705
  Receipt Date: 20130705
  Transmission Date: 20140515
  Serious: Yes (Other)
  Sender: FDA-Public Use
  Company Number: US-JNJFOC-20130618854

PATIENT
  Sex: Female
  Weight: 45.36 kg

DRUGS (22)
  1. XARELTO [Suspect]
     Indication: PRODUCT USED FOR UNKNOWN INDICATION
     Route: 048
     Dates: start: 201209
  2. XARELTO [Suspect]
     Indication: PRODUCT USED FOR UNKNOWN INDICATION
     Route: 048
     Dates: start: 201206, end: 201209
  3. MUCINEX [Concomitant]
     Route: 065
  4. LOVASTATIN [Concomitant]
     Route: 065
  5. TIKOSYN [Concomitant]
     Route: 065
  6. VALTREX [Concomitant]
     Route: 065
  7. METOPROLOL [Concomitant]
     Route: 065
  8. KCL [Concomitant]
     Route: 065
  9. SPIRIVA [Concomitant]
     Route: 065
  10. PROZAC [Concomitant]
     Route: 065
  11. LASIX [Concomitant]
     Route: 065
  12. NITROGLYCERIN [Concomitant]
     Route: 065
  13. VITAMIN D [Concomitant]
     Route: 065
  14. NYSTAT [Concomitant]
     Route: 065
  15. ZOVIRAX [Concomitant]
     Route: 065
  16. LEVOTHYROXINE [Concomitant]
     Route: 065
  17. LORTAB [Concomitant]
     Route: 065
  18. FAMOTIDINE [Concomitant]
     Route: 065
  19. KLONOPIN [Concomitant]
     Route: 065
  20. ADVAIR DISKUS [Concomitant]
     Route: 065
  21. PREMARIN [Concomitant]
     Route: 065
  22. CENTRUM SILVER [Concomitant]
     Route: 065

REACTIONS (3)
  - Gingival bleeding [Unknown]
  - Epistaxis [Unknown]
  - Alopecia [Unknown]
